FAERS Safety Report 9739263 (Version 1)
Quarter: 2013Q4

REPORT INFORMATION
  Report Type: Spontaneous
  Country: US (occurrence: US)
  Receive Date: 20131209
  Receipt Date: 20131209
  Transmission Date: 20140711
  Serious: Yes (Hospitalization)
  Sender: FDA-Public Use
  Company Number: US-BAYER-2013-148630

PATIENT
  Age: 39 Year
  Sex: Female
  Weight: 69.84 kg

DRUGS (6)
  1. YAZ [Suspect]
  2. ZYRTEC [Concomitant]
     Dosage: 10 MG, UNK
     Route: 048
     Dates: start: 20071207
  3. VALTREX [Concomitant]
     Dosage: 500 MG, UNK
     Route: 048
     Dates: start: 20080115
  4. PAXIL [Concomitant]
     Dosage: 20 MG, PER DAY
     Route: 048
  5. MAXAIR [Concomitant]
     Dosage: AS NEEDED
  6. DURA-VENT [Concomitant]
     Route: 048

REACTIONS (1)
  - Pulmonary embolism [None]
